FAERS Safety Report 18330696 (Version 2)
Quarter: 2020Q4

REPORT INFORMATION
  Report Type: Report from Study
  Country: MX (occurrence: MX)
  Receive Date: 20200930
  Receipt Date: 20201005
  Transmission Date: 20210113
  Serious: Yes (Death, Other)
  Sender: FDA-Public Use
  Company Number: NVSC2020MX265178

PATIENT
  Age: 70 Year
  Sex: Male
  Weight: 73 kg

DRUGS (10)
  1. DIGOXIN. [Concomitant]
     Active Substance: DIGOXIN
     Indication: TACHYCARDIA
     Dosage: (UNK(ON MONDAYS, WEDNESDAYS AND FRIDAYS)
     Route: 048
     Dates: start: 20160715, end: 20200814
  2. SPIRONOLACTONE. [Concomitant]
     Active Substance: SPIRONOLACTONE
     Indication: POLYURIA
     Dosage: UNK UNK, QD
     Route: 048
     Dates: start: 20160715, end: 20200814
  3. ASPIRIN. [Concomitant]
     Active Substance: ASPIRIN
     Indication: ANTIPLATELET THERAPY
     Dosage: 100 MG, QD
     Route: 048
     Dates: start: 20160715, end: 20200814
  4. OMEPRAZOLE. [Concomitant]
     Active Substance: OMEPRAZOLE
     Indication: GASTRIC DISORDER
     Dosage: 20 MG, QD
     Route: 048
     Dates: start: 20160715, end: 20200814
  5. ATORVASTATIN [Suspect]
     Active Substance: ATORVASTATIN
     Indication: HAEMATOTOXICITY
     Dosage: 80 MG, QD
     Route: 048
     Dates: start: 20160715
  6. NITRO PATCH [Concomitant]
     Active Substance: NITROGLYCERIN
     Indication: CARDIAC DISORDER
     Dosage: 25 MG(4 YEARS AGO)
     Route: 003
  7. ENTRESTO [Suspect]
     Active Substance: SACUBITRIL\VALSARTAN
     Indication: CARDIAC FAILURE
     Dosage: 1 DF, BID (50 MG)
     Route: 048
     Dates: start: 201608
  8. ATORVASTATIN [Suspect]
     Active Substance: ATORVASTATIN
     Dosage: 10 MG, QD
     Route: 048
  9. CLOPIDOGREL [Concomitant]
     Active Substance: CLOPIDOGREL BISULFATE
     Indication: ANTIPLATELET THERAPY
     Dosage: 75 MG, QD
     Route: 048
     Dates: start: 20160715, end: 20200814
  10. DILATREND [Concomitant]
     Active Substance: CARVEDILOL
     Indication: TACHYCARDIA
     Dosage: 6.25 MG (1 IN THE MORNING AND HALF AT NIGHT)
     Route: 048
     Dates: start: 20160720, end: 20200814

REACTIONS (3)
  - Blood glucose increased [Unknown]
  - Cerebrovascular disorder [Recovered/Resolved]
  - Myocardial infarction [Fatal]

NARRATIVE: CASE EVENT DATE: 20200814
